FAERS Safety Report 7313779-6 (Version None)
Quarter: 2011Q1

REPORT INFORMATION
  Report Type: 
  Country: None (occurrence: None)
  Receive Date: 20110225
  Receipt Date: 20110218
  Transmission Date: 20110831
  Serious: Yes (Other)
  Sender: FDA-Public Use
  Company Number: AU-PFIZER INC-2011037734

PATIENT
  Age: 42 Year
  Sex: Male

DRUGS (2)
  1. LOVAZA [Concomitant]
     Indication: SUPPLEMENTATION THERAPY
     Dosage: UNK
  2. LIPITOR [Suspect]
     Indication: HYPERCHOLESTEROLAEMIA
     Dosage: 20 MG, 1X/DAY AT NIGHT
     Route: 048
     Dates: end: 20101122

REACTIONS (6)
  - RHABDOMYOLYSIS [None]
  - ALANINE AMINOTRANSFERASE INCREASED [None]
  - BLOOD CREATININE INCREASED [None]
  - BLOOD CREATINE PHOSPHOKINASE INCREASED [None]
  - BLOOD UREA INCREASED [None]
  - MUSCLE SPASMS [None]
